FAERS Safety Report 25182404 (Version 2)
Quarter: 2025Q2

REPORT INFORMATION
  Report Type: Spontaneous
  Country: US (occurrence: US)
  Receive Date: 20250410
  Receipt Date: 20250627
  Transmission Date: 20250717
  Serious: No
  Sender: Unknown Manufacturer
  Company Number: US-Kiniksa Pharmaceuticals Ltd.-2024KPU002123

PATIENT
  Age: 73 Year
  Sex: Female

DRUGS (11)
  1. ARCALYST [Suspect]
     Active Substance: RILONACEPT
     Indication: Pericarditis
     Dosage: UNK UNK , QW
     Route: 058
     Dates: start: 20220516, end: 20241111
  2. ARCALYST [Suspect]
     Active Substance: RILONACEPT
     Route: 058
     Dates: start: 20241118, end: 202411
  3. ARCALYST [Suspect]
     Active Substance: RILONACEPT
     Dosage: 160 MILLIGRAM, QW
     Route: 058
     Dates: start: 20241214
  4. COLCHICINE [Concomitant]
     Active Substance: COLCHICINE
     Indication: Product used for unknown indication
  5. DOXEPIN [Concomitant]
     Active Substance: DOXEPIN
     Indication: Product used for unknown indication
  6. ALPRAZOLAM [Concomitant]
     Active Substance: ALPRAZOLAM
     Indication: Product used for unknown indication
  7. ROSUVASTATIN [Concomitant]
     Active Substance: ROSUVASTATIN
     Indication: Product used for unknown indication
  8. FAMOTIDINE [Concomitant]
     Active Substance: FAMOTIDINE
     Indication: Product used for unknown indication
  9. XIIDRA [Concomitant]
     Active Substance: LIFITEGRAST
     Indication: Product used for unknown indication
  10. MUCINEX [Concomitant]
     Active Substance: GUAIFENESIN
     Indication: Product used for unknown indication
  11. VITAMINS [Concomitant]
     Active Substance: VITAMINS
     Indication: Product used for unknown indication

REACTIONS (7)
  - Pneumonia [Recovered/Resolved]
  - Pneumonia [Recovered/Resolved]
  - Rhinorrhoea [Unknown]
  - Cough [Unknown]
  - Sinusitis [Unknown]
  - Hypervolaemia [Unknown]
  - Pericarditis [Unknown]

NARRATIVE: CASE EVENT DATE: 20241109
